FAERS Safety Report 19035068 (Version 2)
Quarter: 2021Q1

REPORT INFORMATION
  Report Type: Spontaneous
  Country: US (occurrence: US)
  Receive Date: 20210320
  Receipt Date: 20210323
  Transmission Date: 20210420
  Serious: Yes (Death)
  Sender: FDA-Public Use
  Company Number: US-ASTRAZENECA-2021A159075

PATIENT
  Sex: Male
  Weight: 102.1 kg

DRUGS (1)
  1. PULMICORT FLEXHALER [Suspect]
     Active Substance: BUDESONIDE
     Indication: PNEUMONIA
     Route: 055
     Dates: start: 20191222

REACTIONS (5)
  - Incorrect dose administered by device [Unknown]
  - Off label use [Unknown]
  - Device use issue [Unknown]
  - Death [Fatal]
  - Drug ineffective [Unknown]
